FAERS Safety Report 4698742-6 (Version None)
Quarter: 2005Q2

REPORT INFORMATION
  Report Type: 
  Country: None (occurrence: None)
  Receive Date: 20050621
  Receipt Date: 20050328
  Transmission Date: 20051028
  Serious: Yes (Other)
  Sender: FDA-Public Use
  Company Number: 2005038119

PATIENT
  Age: 84 Year
  Sex: Female
  Weight: 95.2554 kg

DRUGS (6)
  1. VFEND [Suspect]
     Indication: FUNGAL INFECTION
     Dosage: 400 MG (200 MG,2 IN 1 D), ORAL
     Route: 048
     Dates: start: 20041101, end: 20041125
  2. VFEND [Suspect]
     Indication: GROIN INFECTION
     Dosage: 400 MG (200 MG,2 IN 1 D), ORAL
     Route: 048
     Dates: start: 20041101, end: 20041125
  3. LEVOFLOXACIN [Concomitant]
  4. ATORVASTATIN CALCIUM [Concomitant]
  5. LATANOPROST [Concomitant]
  6. ANALGESICS (ANALGESICS) [Concomitant]

REACTIONS (6)
  - COLOUR BLINDNESS [None]
  - HEART RATE INCREASED [None]
  - INSOMNIA [None]
  - PANIC ATTACK [None]
  - VISION BLURRED [None]
  - VISUAL DISTURBANCE [None]
